FAERS Safety Report 22399069 (Version 3)
Quarter: 2023Q2

REPORT INFORMATION
  Report Type: Report from Study
  Country: CZ (occurrence: CZ)
  Receive Date: 20230602
  Receipt Date: 20230612
  Transmission Date: 20230721
  Serious: Yes (Death, Life-Threatening, Hospitalization)
  Sender: FDA-Public Use
  Company Number: CZ-MYLANLABS-2023M1056349

PATIENT
  Sex: Male
  Weight: 113 kg

DRUGS (10)
  1. HULIO [Suspect]
     Active Substance: ADALIMUMAB-FKJP
     Indication: Psoriasis
     Dosage: 80 MILLIGRAM, ONCE
     Route: 058
     Dates: start: 20230202, end: 20230202
  2. HULIO [Suspect]
     Active Substance: ADALIMUMAB-FKJP
     Dosage: 40 MILLIGRAM, BIWEEKLY
     Route: 058
     Dates: start: 20230210, end: 20230505
  3. RIVAROXABAN [Concomitant]
     Active Substance: RIVAROXABAN
     Indication: Atrial fibrillation
     Dosage: 20 MILLIGRAM, QD
     Route: 048
     Dates: start: 2010, end: 2023
  4. PERINDOPRIL ARGININE [Concomitant]
     Active Substance: PERINDOPRIL ARGININE
     Indication: Essential hypertension
     Dosage: 10MG /2.5 MG, QD,
     Route: 048
     Dates: start: 2001, end: 2023
  5. ISOPTIN DC [Concomitant]
     Indication: Essential hypertension
     Dosage: 240 MILLIGRAM, QD
     Route: 048
     Dates: start: 2001, end: 2023
  6. RILMENIDINE PHOSPHATE [Concomitant]
     Active Substance: RILMENIDINE PHOSPHATE
     Indication: Essential hypertension
     Dosage: 1 MILLIGRAM, BID
     Route: 048
     Dates: start: 2001, end: 2023
  7. URAPIDIL [Concomitant]
     Active Substance: URAPIDIL
     Indication: Essential hypertension
     Dosage: 30 MILLIGRAM, BID
     Route: 048
     Dates: start: 2002, end: 2023
  8. METFORMIN HYDROCHLORIDE [Concomitant]
     Active Substance: METFORMIN HYDROCHLORIDE
     Indication: Type 2 diabetes mellitus
     Dosage: 1000 MILLIGRAM, BID
     Route: 048
     Dates: start: 2011, end: 2023
  9. ALLOPURINOL [Concomitant]
     Active Substance: ALLOPURINOL
     Indication: Gout
     Dosage: 300 MILLIGRAM, QD
     Route: 048
     Dates: start: 2022, end: 2023
  10. ATORVASTATIN [Concomitant]
     Active Substance: ATORVASTATIN
     Indication: Hypercholesterolaemia
     Dosage: 20 MILLIGRAM, HS
     Route: 048
     Dates: start: 2005, end: 2023

REACTIONS (1)
  - COVID-19 pneumonia [Fatal]

NARRATIVE: CASE EVENT DATE: 20230516
